FAERS Safety Report 19241691 (Version 1)
Quarter: 2021Q2

REPORT INFORMATION
  Report Type: Spontaneous
  Country: US (occurrence: US)
  Receive Date: 20210511
  Receipt Date: 20210511
  Transmission Date: 20210717
  Serious: Yes (Other)
  Sender: FDA-Public Use
  Company Number: None

PATIENT
  Age: 76 Year
  Sex: Female

DRUGS (4)
  1. CARBAMAZEPINE. [Suspect]
     Active Substance: CARBAMAZEPINE
     Indication: SEIZURE
     Dosage: ?          QUANTITY:2 DF DOSAGE FORM;?
     Route: 048
     Dates: end: 2021
  2. OXCARBAMAZEPINE [Concomitant]
     Active Substance: OXCARBAZEPINE
  3. HYDROCLORACYDE [Concomitant]
  4. DIURETIC [Concomitant]
     Active Substance: UNSPECIFIED INGREDIENT

REACTIONS (3)
  - Chest discomfort [None]
  - Nightmare [None]
  - Depressed mood [None]

NARRATIVE: CASE EVENT DATE: 2020
